FAERS Safety Report 17676687 (Version 1)
Quarter: 2020Q2

REPORT INFORMATION
  Report Type: Spontaneous
  Country: CA (occurrence: CA)
  Receive Date: 20200416
  Receipt Date: 20200416
  Transmission Date: 20200714
  Serious: Yes (Other)
  Sender: FDA-Public Use
  Company Number: CA-TEVA-2020-CA-1222153

PATIENT
  Age: 7 Year
  Sex: Female
  Weight: 21 kg

DRUGS (7)
  1. DOXORUBICIN HYDROCHLORIDE. [Concomitant]
     Active Substance: DOXORUBICIN HYDROCHLORIDE
  2. L-ASPARAGINASE [Concomitant]
     Active Substance: ASPARAGINASE
  3. MERCAPTOPURINE. [Concomitant]
     Active Substance: MERCAPTOPURINE
  4. VINCRISTINE SULFATE. [Suspect]
     Active Substance: VINCRISTINE SULFATE
     Indication: ACUTE LYMPHOCYTIC LEUKAEMIA
     Route: 042
  5. ASPARAGINASE [Concomitant]
     Active Substance: ASPARAGINASE
  6. METHOTREXATE. [Concomitant]
     Active Substance: METHOTREXATE
  7. CYTARABINE. [Concomitant]
     Active Substance: CYTARABINE

REACTIONS (1)
  - Ototoxicity [Recovered/Resolved]
